FAERS Safety Report 14985836 (Version 1)
Quarter: 2018Q2

REPORT INFORMATION
  Report Type: Spontaneous
  Country: IT (occurrence: IT)
  Receive Date: 20180607
  Receipt Date: 20180607
  Transmission Date: 20180711
  Serious: Yes (Hospitalization)
  Sender: FDA-Public Use
  Company Number: IT-MYLANLABS-2018M1037953

PATIENT
  Age: 14 Year
  Sex: Female

DRUGS (1)
  1. AZITHROMYCIN ANHYDROUS. [Suspect]
     Active Substance: AZITHROMYCIN ANHYDROUS
     Indication: OROPHARYNGEAL PAIN
     Dosage: 500 MG, UNK
     Route: 048
     Dates: start: 20180305, end: 20180306

REACTIONS (2)
  - Abdominal pain [Recovering/Resolving]
  - Muscle swelling [Recovering/Resolving]

NARRATIVE: CASE EVENT DATE: 20180306
